FAERS Safety Report 22256991 (Version 2)
Quarter: 2023Q2

REPORT INFORMATION
  Report Type: Report from Study
  Country: BR (occurrence: BR)
  Receive Date: 20230427
  Receipt Date: 20230517
  Transmission Date: 20230722
  Serious: Yes (Hospitalization)
  Sender: FDA-Public Use
  Company Number: BR-BIOGEN-2023BI01200745

PATIENT
  Age: 44 Year
  Sex: Female
  Weight: 49 kg

DRUGS (5)
  1. TYSABRI [Suspect]
     Active Substance: NATALIZUMAB
     Indication: Multiple sclerosis
     Route: 050
     Dates: start: 202204, end: 202211
  2. TYSABRI [Suspect]
     Active Substance: NATALIZUMAB
     Route: 050
  3. PANTOPRAZOLE [Concomitant]
     Active Substance: PANTOPRAZOLE
     Indication: Gastritis
     Route: 050
     Dates: start: 2017
  4. SERTRALINE [Concomitant]
     Active Substance: SERTRALINE HYDROCHLORIDE
     Indication: Anxiety
     Route: 050
     Dates: start: 2015
  5. BACLOFEN [Concomitant]
     Active Substance: BACLOFEN
     Indication: Musculoskeletal stiffness
     Route: 050
     Dates: start: 202201

REACTIONS (2)
  - Multiple sclerosis relapse [Not Recovered/Not Resolved]
  - Prescribed underdose [Not Recovered/Not Resolved]

NARRATIVE: CASE EVENT DATE: 20230301
